FAERS Safety Report 14347212 (Version 1)
Quarter: 2018Q1

REPORT INFORMATION
  Report Type: Spontaneous
  Country: US (occurrence: US)
  Receive Date: 20180102
  Receipt Date: 20180102
  Transmission Date: 20180509
  Serious: Yes (Death, Life-Threatening, Hospitalization, Other)
  Sender: FDA-Public Use
  Company Number: None

PATIENT
  Age: 76 Year
  Sex: Female
  Weight: 47 kg

DRUGS (1)
  1. ONDANSETRON [Suspect]
     Active Substance: ONDANSETRON
     Indication: ABDOMINAL PAIN
     Dates: start: 20170820, end: 20170821

REACTIONS (5)
  - Ventricular fibrillation [None]
  - Ventricular tachycardia [None]
  - Abdominal pain [None]
  - Electrocardiogram QT prolonged [None]
  - Cardiac arrest [None]

NARRATIVE: CASE EVENT DATE: 20170821
